FAERS Safety Report 8157780-1 (Version None)
Quarter: 2012Q1

REPORT INFORMATION
  Report Type: 
  Country: None (occurrence: None)
  Receive Date: 20120222
  Receipt Date: 20120210
  Transmission Date: 20120608
  Serious: Yes (Hospitalization)
  Sender: FDA-Public Use
  Company Number: FR-ROCHE-1039338

PATIENT
  Sex: Female

DRUGS (6)
  1. MABTHERA [Suspect]
     Dosage: FOURTH CYCLE, FIRST INFUSION
     Dates: start: 20110930
  2. METHOTREXATE [Suspect]
     Indication: RHEUMATOID ARTHRITIS
     Route: 048
     Dates: start: 20070501, end: 20111205
  3. MABTHERA [Suspect]
     Indication: RHEUMATOID ARTHRITIS
     Dosage: FIRST CYCLE
     Route: 042
     Dates: start: 20080625, end: 20080709
  4. FOLIC ACID [Concomitant]
     Dates: start: 20070501
  5. MABTHERA [Suspect]
     Dosage: SECOND CYCLE
     Dates: start: 20090625, end: 20090710
  6. MABTHERA [Suspect]
     Dosage: THIRD CYCLE
     Dates: start: 20110106, end: 20110120

REACTIONS (3)
  - AGRANULOCYTOSIS [None]
  - MONOCYTOSIS [None]
  - PYREXIA [None]
